FAERS Safety Report 8036694-1 (Version None)
Quarter: 2012Q1

REPORT INFORMATION
  Report Type: 
  Country: None (occurrence: None)
  Receive Date: 20120111
  Receipt Date: 20120105
  Transmission Date: 20120608
  Serious: Yes (Hospitalization)
  Sender: FDA-Public Use
  Company Number: PL-JNJFOC-20090304676

PATIENT
  Sex: Male
  Weight: 95 kg

DRUGS (36)
  1. GOLIMUMAB [Suspect]
     Route: 058
     Dates: start: 20070402
  2. GOLIMUMAB [Suspect]
     Route: 058
     Dates: start: 20070619
  3. GOLIMUMAB [Suspect]
     Route: 058
     Dates: start: 20070726
  4. GOLIMUMAB [Suspect]
     Route: 058
     Dates: start: 20070823
  5. GOLIMUMAB [Suspect]
     Route: 058
     Dates: start: 20071115
  6. GOLIMUMAB [Suspect]
     Route: 058
     Dates: start: 20080528
  7. ATENOLOL [Concomitant]
     Route: 048
     Dates: start: 19990101, end: 20090417
  8. GOLIMUMAB [Suspect]
     Route: 058
     Dates: start: 20071019
  9. GOLIMUMAB [Suspect]
     Route: 058
     Dates: start: 20080404
  10. GOLIMUMAB [Suspect]
     Route: 058
     Dates: start: 20080428
  11. GOLIMUMAB [Suspect]
     Route: 058
     Dates: start: 20080627
  12. GOLIMUMAB [Suspect]
     Route: 058
     Dates: start: 20081013
  13. GOLIMUMAB [Suspect]
     Route: 058
     Dates: start: 20070206
  14. GOLIMUMAB [Suspect]
     Route: 058
     Dates: start: 20060918
  15. FOLIC ACID [Concomitant]
     Route: 048
     Dates: start: 20030118, end: 20090315
  16. PERINDOPRIL ERBUMINE [Concomitant]
     Route: 048
     Dates: start: 20030408, end: 20090417
  17. GOLIMUMAB [Suspect]
     Route: 058
     Dates: start: 20070531
  18. GOLIMUMAB [Suspect]
     Route: 058
     Dates: start: 20081215
  19. GOLIMUMAB [Suspect]
     Route: 058
     Dates: start: 20080116
  20. DICLOFENAC SODIUM [Concomitant]
     Route: 048
     Dates: start: 20060531, end: 20090316
  21. GLICLAZIDE [Concomitant]
     Route: 048
     Dates: start: 20090218
  22. GOLIMUMAB [Suspect]
     Route: 058
     Dates: start: 20060821
  23. METHOTREXATE SODIUM [Concomitant]
     Route: 048
     Dates: start: 20070411, end: 20090315
  24. GOLIMUMAB [Suspect]
     Route: 058
     Dates: start: 20070921
  25. GOLIMUMAB [Suspect]
     Route: 058
     Dates: start: 20080730
  26. GOLIMUMAB [Suspect]
     Route: 058
     Dates: start: 20061023
  27. INDAPAMIDE [Concomitant]
     Route: 048
     Dates: start: 20040101
  28. GOLIMUMAB [Suspect]
     Route: 058
     Dates: start: 20070427
  29. GOLIMUMAB [Suspect]
     Route: 058
     Dates: start: 20080307
  30. GOLIMUMAB [Suspect]
     Route: 058
     Dates: start: 20061212
  31. GOLIMUMAB [Suspect]
     Route: 058
     Dates: start: 20061116
  32. GOLIMUMAB [Suspect]
     Indication: PSORIATIC ARTHROPATHY
     Route: 058
     Dates: start: 20070307
  33. GOLIMUMAB [Suspect]
     Route: 058
     Dates: start: 20071214
  34. GOLIMUMAB [Suspect]
     Route: 058
     Dates: start: 20080207
  35. GOLIMUMAB [Suspect]
     Route: 058
     Dates: start: 20081114
  36. GOLIMUMAB [Suspect]
     Route: 058
     Dates: start: 20070118

REACTIONS (1)
  - EYE INFECTION TOXOPLASMAL [None]
